FAERS Safety Report 9422120 (Version 5)
Quarter: 2013Q3

REPORT INFORMATION
  Report Type: Spontaneous
  Country: GB (occurrence: GB)
  Receive Date: 20130726
  Receipt Date: 20130902
  Transmission Date: 20140515
  Serious: Yes (Congenital Anomaly, Other)
  Sender: FDA-Public Use
  Company Number: GB-PFIZER INC-2013216552

PATIENT
  Sex: 0

DRUGS (7)
  1. PREGABALIN [Suspect]
     Indication: PAIN IN EXTREMITY
     Dosage: 300 MG, 2X/DAY
     Route: 064
  2. OLANZAPINE [Suspect]
     Indication: SCHIZOPHRENIA
     Dosage: 15 MG, 1X/DAY
     Route: 064
  3. OMEPRAZOLE [Suspect]
     Dosage: 30 MG, UNK
     Route: 064
  4. DIAZEPAM [Suspect]
     Dosage: 10 MG, 3X/DAY
     Route: 064
  5. DIAZEPAM [Suspect]
     Dosage: 10 MG, 2X/DAY
     Route: 064
  6. SUBUTEX [Suspect]
     Indication: SUBSTANCE ABUSE
     Dosage: 14 MG, 1X/DAY
     Route: 064
  7. ZOPICLONE [Suspect]
     Dosage: 15 MG, 1X/DAY
     Route: 064

REACTIONS (7)
  - Maternal exposure during pregnancy [Unknown]
  - Limb reduction defect [Not Recovered/Not Resolved]
  - Scoliosis [Not Recovered/Not Resolved]
  - Single functional kidney [Not Recovered/Not Resolved]
  - Oesophageal atresia [Unknown]
  - Cardiac disorder [Unknown]
  - Foetal malformation [Not Recovered/Not Resolved]
